FAERS Safety Report 6671501-0 (Version None)
Quarter: 2010Q2

REPORT INFORMATION
  Report Type: 
  Country: None (occurrence: None)
  Receive Date: 20100407
  Receipt Date: 20100405
  Transmission Date: 20101027
  Serious: Yes (Hospitalization)
  Sender: FDA-Public Use
  Company Number: US-MERCK-1003USA04658

PATIENT
  Age: 79 Year
  Sex: Male

DRUGS (5)
  1. JANUVIA [Suspect]
     Indication: DIABETES MELLITUS
     Route: 048
     Dates: start: 20090918, end: 20100301
  2. GLYBURIDE [Concomitant]
     Route: 065
  3. ACTOS [Concomitant]
     Route: 065
  4. ZETIA [Concomitant]
     Route: 048
  5. METFORMIN [Concomitant]
     Route: 065

REACTIONS (1)
  - PAIN IN EXTREMITY [None]
